FAERS Safety Report 22137494 (Version 1)
Quarter: 2023Q1

REPORT INFORMATION
  Report Type: Spontaneous
  Country: US (occurrence: US)
  Receive Date: 20230325
  Receipt Date: 20230325
  Transmission Date: 20230418
  Serious: No
  Sender: FDA-Public Use
  Company Number: US-BRISTOL-MYERS SQUIBB COMPANY-2023-042815

PATIENT
  Age: 81 Year
  Sex: Male
  Weight: 78.47 kg

DRUGS (1)
  1. REVLIMID [Suspect]
     Active Substance: LENALIDOMIDE
     Indication: Plasma cell myeloma
     Dosage: FREQUENCY: DAILY 1-21, THEN 7 DAYS OFF
     Route: 048
     Dates: start: 20221021

REACTIONS (1)
  - Rhinovirus infection [Recovered/Resolved]
